FAERS Safety Report 20069895 (Version 1)
Quarter: 2021Q4

REPORT INFORMATION
  Report Type: Spontaneous
  Country: SK (occurrence: SK)
  Receive Date: 20211115
  Receipt Date: 20211115
  Transmission Date: 20220303
  Serious: Yes (Life-Threatening, Hospitalization, Other)
  Sender: FDA-Public Use
  Company Number: SK-BoehringerIngelheim-2021-BI-137754

PATIENT
  Age: 75 Year
  Sex: Male

DRUGS (7)
  1. PRADAXA [Suspect]
     Active Substance: DABIGATRAN ETEXILATE MESYLATE
     Indication: Atrial fibrillation
     Dates: start: 20211012, end: 20211012
  2. MOXONIDINE [Concomitant]
     Active Substance: MOXONIDINE
     Indication: Product used for unknown indication
     Dosage: 1-0-1
  3. IFIRMASTA [Concomitant]
     Indication: Product used for unknown indication
     Dosage: 1-0-0
  4. METOPROLOL TARTRATE [Concomitant]
     Active Substance: METOPROLOL TARTRATE
     Indication: Product used for unknown indication
     Dosage: 1-0-0
  5. FUROSEMIDE [Concomitant]
     Active Substance: FUROSEMIDE
     Indication: Product used for unknown indication
  6. AMLODIPINE BESYLATE [Concomitant]
     Active Substance: AMLODIPINE BESYLATE
     Indication: Product used for unknown indication
     Dosage: 1-0-2
  7. NITRENDIPINE [Concomitant]
     Active Substance: NITRENDIPINE
     Indication: Product used for unknown indication

REACTIONS (5)
  - Haemorrhage intracranial [Recovering/Resolving]
  - Intraventricular haemorrhage [Recovering/Resolving]
  - Somnolence [Recovering/Resolving]
  - Dysarthria [Recovering/Resolving]
  - Quadriparesis [Recovering/Resolving]

NARRATIVE: CASE EVENT DATE: 20210101
